FAERS Safety Report 6932538-7 (Version None)
Quarter: 2010Q3

REPORT INFORMATION
  Report Type: 
  Country: None (occurrence: None)
  Receive Date: 20100817
  Receipt Date: 20100802
  Transmission Date: 20110219
  Serious: Yes (Hospitalization)
  Sender: FDA-Public Use
  Company Number: 003692

PATIENT
  Sex: Male
  Weight: 5.3 kg

DRUGS (4)
  1. LACOSAMIDE [Suspect]
     Indication: EPILEPSY
     Dosage: (400 MG QD INTRA-UTERINE)
     Route: 015
     Dates: start: 20090109, end: 20090514
  2. ADVIL LIQUI-GELS [Concomitant]
  3. PRENATAL VITAMINS [Concomitant]
  4. LORTAB [Concomitant]

REACTIONS (11)
  - CAESAREAN SECTION [None]
  - CARDIAC MURMUR [None]
  - DERMATITIS DIAPER [None]
  - ECZEMA INFECTED [None]
  - IMMATURE RESPIRATORY SYSTEM [None]
  - JAUNDICE NEONATAL [None]
  - MACROSOMIA [None]
  - MATERNAL DRUGS AFFECTING FOETUS [None]
  - NEONATAL RESPIRATORY DISTRESS SYNDROME [None]
  - POLYHYDRAMNIOS [None]
  - PULMONARY OEDEMA NEONATAL [None]
